FAERS Safety Report 23318769 (Version 1)
Quarter: 2023Q4

REPORT INFORMATION
  Report Type: Spontaneous
  Country: AU (occurrence: AU)
  Receive Date: 20231220
  Receipt Date: 20231220
  Transmission Date: 20240110
  Serious: Yes (Other)
  Sender: FDA-Public Use
  Company Number: AU-CIPLA LTD.-2023AU08019

PATIENT

DRUGS (1)
  1. FENOFIBRATE [Suspect]
     Active Substance: FENOFIBRATE
     Indication: Blood triglycerides increased
     Dosage: UNK
     Route: 048
     Dates: end: 20230217

REACTIONS (2)
  - Drug screen false positive [Recovered/Resolved]
  - Urine amphetamine positive [Recovered/Resolved]

NARRATIVE: CASE EVENT DATE: 20221101
